FAERS Safety Report 15780591 (Version 1)
Quarter: 2019Q1

REPORT INFORMATION
  Report Type: Spontaneous
  Country: GB (occurrence: GB)
  Receive Date: 20190102
  Receipt Date: 20190102
  Transmission Date: 20190417
  Serious: Yes (Other)
  Sender: FDA-Public Use
  Company Number: GB-SAMSUNG BIOEPIS-SB-2018-16957

PATIENT
  Age: 55 Year
  Sex: Female
  Weight: 69.3 kg

DRUGS (1)
  1. INFLIXIMAB [Suspect]
     Active Substance: INFLIXIMAB
     Indication: PRODUCT USED FOR UNKNOWN INDICATION
     Route: 042
     Dates: start: 20180504, end: 20180504

REACTIONS (6)
  - Paraesthesia [Unknown]
  - Hypersensitivity [Recovering/Resolving]
  - Nausea [Unknown]
  - Chest discomfort [Unknown]
  - Hypoaesthesia [Unknown]
  - Syncope [Unknown]

NARRATIVE: CASE EVENT DATE: 20180504
